FAERS Safety Report 14234551 (Version 1)
Quarter: 2017Q4

REPORT INFORMATION
  Report Type: Spontaneous
  Country: US (occurrence: US)
  Receive Date: 20171129
  Receipt Date: 20171129
  Transmission Date: 20180321
  Serious: No
  Sender: FDA-Public Use
  Company Number: US-JNJFOC-20171015853

PATIENT
  Age: 83 Year
  Sex: Female
  Weight: 59.88 kg

DRUGS (1)
  1. TYLENOL REGULAR STRENGTH [Suspect]
     Active Substance: ACETAMINOPHEN
     Indication: PAIN
     Dosage: MIDDLE OF THE NIGHT
     Route: 048

REACTIONS (2)
  - Product packaging issue [Unknown]
  - Blood glucose increased [Unknown]
